FAERS Safety Report 14961115 (Version 4)
Quarter: 2018Q3

REPORT INFORMATION
  Report Type: Report from Study
  Country: None (occurrence: US)
  Receive Date: 20180601
  Receipt Date: 20180730
  Transmission Date: 20181010
  Serious: Yes (Hospitalization, Other)
  Sender: FDA-Public Use
  Company Number: US-ABBVIE-18K-163-2365658-00

PATIENT
  Age: 73 Year
  Sex: Female
  Weight: 70.37 kg

DRUGS (4)
  1. SUMATRIPTAN. [Concomitant]
     Active Substance: SUMATRIPTAN
     Indication: MIGRAINE
  2. HUMIRA [Suspect]
     Active Substance: ADALIMUMAB
     Indication: CROHN^S DISEASE
     Route: 058
     Dates: start: 20180427
  3. HUMIRA [Suspect]
     Active Substance: ADALIMUMAB
     Indication: PSORIASIS
     Route: 058
     Dates: start: 201602, end: 20180330
  4. LEVOTHYROXINE. [Concomitant]
     Active Substance: LEVOTHYROXINE
     Indication: THYROID DISORDER

REACTIONS (14)
  - Injection site swelling [Recovered/Resolved]
  - Viral infection [Recovered/Resolved]
  - Paraesthesia [Unknown]
  - Cervical spinal stenosis [Unknown]
  - Hypoaesthesia [Unknown]
  - Pain in extremity [Unknown]
  - Dyspepsia [Not Recovered/Not Resolved]
  - Cholelithiasis [Recovering/Resolving]
  - Injection site pruritus [Recovered/Resolved]
  - Limb discomfort [Unknown]
  - Spondylitis [Not Recovered/Not Resolved]
  - Spinal osteoarthritis [Unknown]
  - Abdominal distension [Recovered/Resolved]
  - Musculoskeletal pain [Unknown]

NARRATIVE: CASE EVENT DATE: 2018
